FAERS Safety Report 4822535-X (Version None)
Quarter: 2005Q4

REPORT INFORMATION
  Report Type: 
  Country: None (occurrence: None)
  Receive Date: 20051104
  Receipt Date: 20051021
  Transmission Date: 20060501
  Serious: Yes (Death, Life-Threatening, Hospitalization)
  Sender: FDA-Public Use
  Company Number: SUS1-2005-00800

PATIENT
  Age: 59 Year
  Sex: Male

DRUGS (13)
  1. PENTASA [Suspect]
     Indication: CROHN'S DISEASE
     Dosage: 1 G DAILY, ORAL
     Route: 048
     Dates: start: 20021122, end: 20050701
  2. ACYCLOVIR [Concomitant]
  3. LANSOPRAZOLE [Concomitant]
  4. FLUCONAZOLE [Concomitant]
  5. CYCLOSPORINE [Concomitant]
  6. RIFAMPICIN [Concomitant]
  7. FUSIDATE SODIUM (FUSIDATE SODIUM) [Concomitant]
  8. PREDNISONE [Concomitant]
  9. SENNA (SENNA ALEXANDRINA) [Concomitant]
  10. IMIPENEM (IMIPENEM) [Concomitant]
  11. ACETAMINOPHEN [Concomitant]
  12. TRAMADOL HCL [Concomitant]
  13. MICROLET (ETHINYLESTRADIOL, GESTODENE) [Concomitant]

REACTIONS (27)
  - ABDOMINAL DISTENSION [None]
  - ABDOMINAL PAIN [None]
  - ACUTE MYELOID LEUKAEMIA [None]
  - ANORECTAL DISORDER [None]
  - ANOREXIA [None]
  - ARTHRALGIA [None]
  - ASPIRATION BONE MARROW ABNORMAL [None]
  - BALANITIS CANDIDA [None]
  - C-REACTIVE PROTEIN INCREASED [None]
  - CARDIAC ARREST [None]
  - CONSTIPATION [None]
  - DYSPNOEA [None]
  - HAEMORRHAGE [None]
  - LOWER RESPIRATORY TRACT INFECTION [None]
  - MALAISE [None]
  - MYELODYSPLASTIC SYNDROME [None]
  - NEUTROPENIA [None]
  - ORAL CANDIDIASIS [None]
  - PROSTATIC SPECIFIC ANTIGEN INCREASED [None]
  - REFRACTORY ANAEMIA [None]
  - RENAL IMPAIRMENT [None]
  - RESPIRATORY ARREST [None]
  - STAPHYLOCOCCAL INFECTION [None]
  - TENDERNESS [None]
  - URINE ANALYSIS ABNORMAL [None]
  - VENTRICULAR HYPERTROPHY [None]
  - VOMITING [None]
